FAERS Safety Report 5981867-2 (Version None)
Quarter: 2008Q4

REPORT INFORMATION
  Report Type: 
  Country: None (occurrence: None)
  Receive Date: 20081202
  Receipt Date: 20081118
  Transmission Date: 20090506
  Serious: Yes (Other)
  Sender: FDA-Public Use
  Company Number: 232032K08USA

PATIENT
  Age: 68 Year
  Sex: Female
  Weight: 57 kg

DRUGS (5)
  1. REBIF [Suspect]
     Indication: MULTIPLE SCLEROSIS
     Dosage: 44 MCG, 3 IN 1 WEEKS, SUBCUTANEOUS
     Route: 058
     Dates: start: 20060201
  2. TIZANDINE (TIZANDINE) [Concomitant]
  3. CALCIUM (CALCIUM-SANDOZ) [Concomitant]
  4. GLUCOSAMINE WITH CHONDROITIN SULFATE(GLUCOSAMINE W/CHONDROITIN) [Concomitant]
  5. ALEVE (CAPLET) [Concomitant]

REACTIONS (2)
  - INFLAMMATORY CARCINOMA OF THE BREAST [None]
  - LYMPHADENOPATHY [None]
